FAERS Safety Report 8478458-0 (Version None)
Quarter: 2012Q2

REPORT INFORMATION
  Report Type: 
  Country: None (occurrence: None)
  Receive Date: 20120629
  Receipt Date: 20120326
  Transmission Date: 20120825
  Serious: No
  Sender: FDA-Public Use
  Company Number: US-ABBOTT-12P-163-0919892-00

PATIENT
  Sex: Male
  Weight: 92.162 kg

DRUGS (1)
  1. NORVIR [Suspect]
     Indication: HIV INFECTION

REACTIONS (1)
  - EXPIRED DRUG ADMINISTERED [None]
